FAERS Safety Report 22337517 (Version 1)
Quarter: 2023Q2

REPORT INFORMATION
  Report Type: Spontaneous
  Country: US (occurrence: US)
  Receive Date: 20230518
  Receipt Date: 20230518
  Transmission Date: 20230722
  Serious: Yes (Hospitalization, Other)
  Sender: FDA-Public Use
  Company Number: US-AMNEAL PHARMACEUTICALS-2023-AMRX-01651

PATIENT
  Age: 69 Year
  Sex: Male

DRUGS (5)
  1. WARFARIN SODIUM [Suspect]
     Active Substance: WARFARIN SODIUM
     Indication: Hypertension
     Dosage: UNK
     Route: 065
  2. WARFARIN SODIUM [Suspect]
     Active Substance: WARFARIN SODIUM
     Indication: Atrial fibrillation
  3. MYCOPHENOLIC ACID [Concomitant]
     Active Substance: MYCOPHENOLIC ACID
     Indication: Prophylaxis against transplant rejection
     Dosage: UNK
     Route: 065
  4. PREDNISONE [Concomitant]
     Active Substance: PREDNISONE
     Indication: Prophylaxis against transplant rejection
     Dosage: UNK
     Route: 065
  5. CYCLOSPORINE [Concomitant]
     Active Substance: CYCLOSPORINE
     Indication: Prophylaxis against transplant rejection
     Dosage: UNK
     Route: 065

REACTIONS (1)
  - Nephropathy [Recovering/Resolving]
